FAERS Safety Report 21907515 (Version 1)
Quarter: 2023Q1

REPORT INFORMATION
  Report Type: Spontaneous
  Country: JP (occurrence: JP)
  Receive Date: 20230125
  Receipt Date: 20230125
  Transmission Date: 20230418
  Serious: No
  Sender: FDA-Public Use
  Company Number: JP-MSD-2301JPN002232J

PATIENT
  Age: 79 Year
  Sex: Female

DRUGS (3)
  1. LAGEVRIO [Suspect]
     Active Substance: MOLNUPIRAVIR
     Indication: COVID-19 treatment
     Dosage: 200 MILLIGRAM, BID
     Route: 048
     Dates: start: 20221228, end: 20221230
  2. CALONAL [Concomitant]
     Active Substance: ACETAMINOPHEN
     Indication: Antipyresis
     Dosage: 1 DOSAGE FORM, ON FEVER, UP TO 3 TIMES/DAY
     Route: 048
     Dates: start: 20221228, end: 20221230
  3. TRANSAMIN [Concomitant]
     Active Substance: TRANEXAMIC ACID
     Dosage: 250 MILLIGRAM, BID
     Route: 048
     Dates: start: 20221228, end: 20221230

REACTIONS (3)
  - Rash pruritic [Recovering/Resolving]
  - Product use issue [Unknown]
  - Underdose [Unknown]

NARRATIVE: CASE EVENT DATE: 20221228
